FAERS Safety Report 17565955 (Version 1)
Quarter: 2020Q1

REPORT INFORMATION
  Report Type: Spontaneous
  Country: US (occurrence: US)
  Receive Date: 20200320
  Receipt Date: 20200320
  Transmission Date: 20200409
  Serious: No
  Sender: FDA-Public Use
  Company Number: NVSC2020US080166

PATIENT
  Age: 13 Year
  Sex: Female

DRUGS (1)
  1. PREDNISONE. [Suspect]
     Active Substance: PREDNISONE
     Indication: ENCEPHALOPATHY
     Dosage: 40 MG, QD
     Route: 048

REACTIONS (1)
  - Drug ineffective for unapproved indication [Unknown]
